FAERS Safety Report 5284752-7 (Version None)
Quarter: 2007Q1

REPORT INFORMATION
  Report Type: 
  Country: None (occurrence: None)
  Receive Date: 20061226
  Receipt Date: 20061107
  Transmission Date: 20070707
  Serious: No
  Sender: FDA-Public Use
  Company Number: 2006PV018937

PATIENT
  Age: 69 Year
  Sex: Female
  Weight: 70.7611 kg

DRUGS (6)
  1. SYMLIN [Suspect]
     Indication: DIABETES MELLITUS INSULIN-DEPENDENT
     Dosage: SEE IMAGE
     Route: 058
     Dates: start: 20060804, end: 20060801
  2. SYMLIN [Suspect]
     Indication: DIABETES MELLITUS INSULIN-DEPENDENT
     Dosage: SEE IMAGE
     Route: 058
     Dates: start: 20060801, end: 20061001
  3. SYMLIN [Suspect]
     Indication: DIABETES MELLITUS INSULIN-DEPENDENT
     Dosage: SEE IMAGE
     Route: 058
     Dates: start: 20061023, end: 20061001
  4. SYMLIN [Suspect]
     Indication: DIABETES MELLITUS INSULIN-DEPENDENT
     Dosage: SEE IMAGE
     Route: 058
     Dates: start: 20061001
  5. NOVOLOG [Concomitant]
  6. INSULIN PUMP [Concomitant]

REACTIONS (5)
  - ABDOMINAL PAIN UPPER [None]
  - BLOOD GLUCOSE DECREASED [None]
  - BLOOD GLUCOSE INCREASED [None]
  - HOT FLUSH [None]
  - INCREASED INSULIN REQUIREMENT [None]
